FAERS Safety Report 13328814 (Version 1)
Quarter: 2017Q1

REPORT INFORMATION
  Report Type: Spontaneous
  Country: RU (occurrence: RU)
  Receive Date: 20170313
  Receipt Date: 20170313
  Transmission Date: 20170428
  Serious: Yes (Hospitalization)
  Sender: FDA-Public Use
  Company Number: PHHY2017RU037301

PATIENT
  Age: 63 Year
  Sex: Female

DRUGS (3)
  1. DICLOFENAC [Suspect]
     Active Substance: DICLOFENAC
     Indication: PRODUCT USED FOR UNKNOWN INDICATION
     Route: 030
  2. LIDOCAINE. [Suspect]
     Active Substance: LIDOCAINE
     Indication: PRODUCT USED FOR UNKNOWN INDICATION
     Route: 030
  3. CEFTRIAXONE. [Suspect]
     Active Substance: CEFTRIAXONE
     Indication: PRODUCT USED FOR UNKNOWN INDICATION
     Route: 030

REACTIONS (1)
  - Angioedema [Recovering/Resolving]
